FAERS Safety Report 18436420 (Version 1)
Quarter: 2020Q4

REPORT INFORMATION
  Report Type: Spontaneous
  Country: US (occurrence: US)
  Receive Date: 20201028
  Receipt Date: 20201028
  Transmission Date: 20210114
  Serious: No
  Sender: FDA-Public Use
  Company Number: US-HIKMA PHARMACEUTICALS USA INC.-US-H14001-20-03297

PATIENT
  Age: 13 Year
  Sex: Male
  Weight: 23.61 kg

DRUGS (1)
  1. CLOBAZAM. [Suspect]
     Active Substance: CLOBAZAM
     Indication: EPILEPSY
     Dosage: 4 ML AT AM / 5 ML AT BEDTIME; REDUCED TO 2 ML/2.5ML
     Route: 048

REACTIONS (6)
  - Lethargy [Recovered/Resolved]
  - Hypersomnia [Recovered/Resolved]
  - Sedation [Recovered/Resolved]
  - Nasal congestion [Recovered/Resolved]
  - Product physical issue [Unknown]
  - Increased upper airway secretion [Recovered/Resolved]

NARRATIVE: CASE EVENT DATE: 20200615
